FAERS Safety Report 5551107-7 (Version None)
Quarter: 2007Q4

REPORT INFORMATION
  Report Type: 
  Country: None (occurrence: None)
  Receive Date: 20071212
  Receipt Date: 20071205
  Transmission Date: 20080405
  Serious: Yes (Other)
  Sender: FDA-Public Use
  Company Number: A0698671A

PATIENT
  Age: 44 Year
  Sex: Female

DRUGS (1)
  1. AVANDIA [Suspect]

REACTIONS (4)
  - ANKLE FRACTURE [None]
  - BONE DISORDER [None]
  - BONE FORMATION DECREASED [None]
  - OSTEOPOROSIS [None]
